FAERS Safety Report 4790040-5 (Version None)
Quarter: 2005Q4

REPORT INFORMATION
  Report Type: 
  Country: None (occurrence: None)
  Receive Date: 20051006
  Receipt Date: 20050926
  Transmission Date: 20060501
  Serious: Yes (Hospitalization)
  Sender: FDA-Public Use
  Company Number: KR-JNJFOC-20050905820

PATIENT
  Sex: Male

DRUGS (2)
  1. REMINYL [Suspect]
     Indication: DEMENTIA
     Route: 048
     Dates: start: 20040930, end: 20041111
  2. ZOLOFT [Concomitant]
     Indication: DEPRESSION
     Route: 048
     Dates: start: 20040930, end: 20041111

REACTIONS (1)
  - HAEMORRHAGE INTRACRANIAL [None]
